FAERS Safety Report 6807299-2 (Version None)
Quarter: 2010Q2

REPORT INFORMATION
  Report Type: 
  Country: None (occurrence: None)
  Receive Date: 20100629
  Receipt Date: 20080828
  Transmission Date: 20101027
  Serious: No
  Sender: FDA-Public Use
  Company Number: US-PFIZER INC-2008072370

PATIENT
  Sex: Male

DRUGS (2)
  1. TIKOSYN [Suspect]
  2. DIURETICS [Concomitant]

REACTIONS (3)
  - CARDIOVERSION [None]
  - INTENTIONAL DRUG MISUSE [None]
  - NASOPHARYNGITIS [None]
